FAERS Safety Report 19810717 (Version 2)
Quarter: 2021Q4

REPORT INFORMATION
  Report Type: Report from Study
  Country: DE (occurrence: DE)
  Receive Date: 20210909
  Receipt Date: 20211118
  Transmission Date: 20220304
  Serious: Yes (Death, Hospitalization)
  Sender: FDA-Public Use
  Company Number: DE-009507513-2107DEU006055

PATIENT
  Age: 73 Year
  Sex: Female
  Weight: 47 kg

DRUGS (5)
  1. ALIMTA [Suspect]
     Active Substance: PEMETREXED DISODIUM
     Indication: Non-small cell lung cancer
     Dosage: 600 MG, UNKNOWN
     Route: 065
     Dates: start: 20210113
  2. ALIMTA [Suspect]
     Active Substance: PEMETREXED DISODIUM
     Dosage: 730 MG, UNKNOWN
     Route: 042
     Dates: start: 20210701, end: 20210701
  3. PEMBROLIZUMAB [Suspect]
     Active Substance: PEMBROLIZUMAB
     Indication: Non-small cell lung cancer
     Dosage: 200 MILLIGRAM FIRST LINE; FREQUENCY AND ROUTE OF ADMINISTRATION WERE NOT REPORTED
     Route: 065
     Dates: start: 20210113, end: 20210801
  4. DEXAMETHASONE [Concomitant]
     Active Substance: DEXAMETHASONE
     Indication: Product used for unknown indication
     Dosage: 8 MG
     Route: 042
     Dates: start: 20210701
  5. DEXAMETHASONE [Concomitant]
     Active Substance: DEXAMETHASONE
     Dosage: 4 MG, BID
     Route: 042
     Dates: start: 20210702

REACTIONS (2)
  - Ischaemia [Fatal]
  - Death [Fatal]

NARRATIVE: CASE EVENT DATE: 20210714
